FAERS Safety Report 8234118-2 (Version None)
Quarter: 2012Q1

REPORT INFORMATION
  Report Type: 
  Country: None (occurrence: None)
  Receive Date: 20120326
  Receipt Date: 20120326
  Transmission Date: 20120608
  Serious: Yes (Life-Threatening, Hospitalization)
  Sender: FDA-Public Use
  Company Number: None

PATIENT
  Age: 55 Year
  Sex: Female
  Weight: 62.595 kg

DRUGS (2)
  1. CYMBALTA [Suspect]
     Indication: DEPRESSION
     Dosage: 30MG
     Route: 048
     Dates: start: 20120323, end: 20120323
  2. CYMBALTA [Suspect]
     Indication: ARTHRALGIA
     Dosage: 30MG
     Route: 048
     Dates: start: 20120323, end: 20120323

REACTIONS (11)
  - BLADDER SPHINCTER ATONY [None]
  - APPARENT DEATH [None]
  - CARDIAC ENZYMES INCREASED [None]
  - BLOOD POTASSIUM DECREASED [None]
  - ELECTROCARDIOGRAM ABNORMAL [None]
  - HYPERHIDROSIS [None]
  - HYPOTONIA [None]
  - ACTIVITIES OF DAILY LIVING IMPAIRED [None]
  - NAUSEA [None]
  - ASTHENIA [None]
  - AMNESIA [None]
